FAERS Safety Report 8698747 (Version 2)
Quarter: 2013Q4

REPORT INFORMATION
  Report Type: Spontaneous
  Country: JP (occurrence: JP)
  Receive Date: 20120802
  Receipt Date: 20131031
  Transmission Date: 20140711
  Serious: Yes (Other)
  Sender: FDA-Public Use
  Company Number: JP-009507513-1207JPN011024

PATIENT
  Age: 38 Year
  Sex: Female

DRUGS (2)
  1. REMERON [Suspect]
     Dosage: DAILY DOSAGE UNKNOWN
     Route: 048
  2. [THERAPY UNSPECIFIED] [Concomitant]
     Dosage: DAILY DOSAGE UNKNOWN
     Route: 048

REACTIONS (1)
  - Blindness transient [Recovered/Resolved]
